FAERS Safety Report 8575217-5 (Version None)
Quarter: 2012Q2

REPORT INFORMATION
  Report Type: 
  Country: None (occurrence: None)
  Receive Date: 20120423
  Receipt Date: 20070411
  Transmission Date: 20120825
  Serious: Yes (Hospitalization)
  Sender: FDA-Public Use
  Company Number: PHHY2007US03647

PATIENT
  Sex: Female

DRUGS (1)
  1. EXJADE [Suspect]
     Dosage: 500 MG, UNK, ORAL
     Route: 048

REACTIONS (2)
  - RENAL FUNCTION TEST ABNORMAL [None]
  - BLOOD CREATININE INCREASED [None]
